FAERS Safety Report 7053647-0 (Version None)
Quarter: 2010Q4

REPORT INFORMATION
  Report Type: 
  Country: None (occurrence: None)
  Receive Date: 20101020
  Receipt Date: 20101005
  Transmission Date: 20110411
  Serious: Yes (Other)
  Sender: FDA-Public Use
  Company Number: US-AMGEN LTD.-US332184

PATIENT

DRUGS (12)
  1. NPLATE [Suspect]
     Indication: IDIOPATHIC THROMBOCYTOPENIC PURPURA
     Dosage: UNK UNK, QWK
     Route: 058
     Dates: start: 20081112, end: 20090419
  2. ACETAMINOPHEN [Concomitant]
     Dosage: 500 MG, PRN
     Route: 048
  3. OLMESARTAN MEDOXOMIL [Concomitant]
     Dosage: 40 MG, QD
     Route: 048
  4. HYDROCHLOROTHIAZIDE [Concomitant]
     Dosage: 25 MG, QD
     Route: 048
  5. AMLODIPINE [Concomitant]
     Dosage: 5 MG, QD
     Route: 048
  6. ALENDRONATE SODIUM [Concomitant]
     Dosage: 70 MG, QWK
     Route: 048
  7. DESLORATADINE [Concomitant]
     Dosage: 5 MG, QD
     Route: 048
  8. CALCIUM CARBONATE [Concomitant]
     Dosage: 600 MG, QD
     Route: 048
  9. COLECALCIFEROL [Concomitant]
     Dosage: 400 IU, QD
     Route: 048
  10. VITAMIN A/VITAMIN C/VITAMIN E/ZINC/SELENIUM/COPPER/LUTEIN [Concomitant]
     Dosage: UNK UNK, QD
     Route: 048
  11. ASCORBIC ACID [Concomitant]
     Dosage: 500 MG, QD
     Route: 048
  12. MULTI-VITAMINS [Concomitant]
     Dosage: UNK UNK, QD
     Route: 048

REACTIONS (5)
  - FLATULENCE [None]
  - HYPOAESTHESIA [None]
  - PAIN IN EXTREMITY [None]
  - PLATELET COUNT DECREASED [None]
  - THERAPEUTIC RESPONSE DECREASED [None]
